FAERS Safety Report 9126951 (Version 1)
Quarter: 2013Q1

REPORT INFORMATION
  Report Type: Report from Study
  Country: US (occurrence: US)
  Receive Date: 20130122
  Receipt Date: 20130122
  Transmission Date: 20140127
  Serious: No
  Sender: FDA-Public Use
  Company Number: US-VERTEX PHARMACEUTICALS INC.-2013-000865

PATIENT
  Age: 62 Year
  Sex: Male
  Weight: 76 kg

DRUGS (6)
  1. VX-950 (TELAPREVIR) [Suspect]
     Indication: HEPATITIS C
     Dosage: 750 MG, TID
     Route: 048
     Dates: start: 20121204
  2. VX-950 (TELAPREVIR) [Suspect]
     Dosage: 750 UNK, UNK
     Route: 048
     Dates: start: 20130109
  3. RIBAPAK [Suspect]
     Indication: HEPATITIS C
     Dosage: 600 MG, BID
     Route: 048
     Dates: start: 20121204
  4. RIBAPAK [Suspect]
     Dosage: 600 MG, BID
     Route: 048
     Dates: start: 20130109
  5. PEGASYS [Suspect]
     Indication: HEPATITIS C
     Dosage: 180 ?G, QW
     Route: 058
     Dates: start: 20121204
  6. PEGASYS [Suspect]
     Dosage: 180 ?G, QW
     Route: 058
     Dates: start: 20130109

REACTIONS (6)
  - Drug dose omission [Recovered/Resolved]
  - Insomnia [Not Recovered/Not Resolved]
  - Rash pruritic [Not Recovered/Not Resolved]
  - Haemorrhoids [Not Recovered/Not Resolved]
  - Anal pruritus [Not Recovered/Not Resolved]
  - Anorectal discomfort [Not Recovered/Not Resolved]
